FAERS Safety Report 19379182 (Version 2)
Quarter: 2021Q4

REPORT INFORMATION
  Report Type: Report from Study
  Country: US (occurrence: US)
  Receive Date: 20210607
  Receipt Date: 20211011
  Transmission Date: 20220304
  Serious: Yes (Other)
  Sender: FDA-Public Use
  Company Number: US-MERCK HEALTHCARE KGAA-9193147

PATIENT
  Age: 47 Year
  Sex: Female

DRUGS (2)
  1. REBIF [Suspect]
     Active Substance: INTERFERON BETA-1A
     Indication: Multiple sclerosis
     Route: 058
     Dates: start: 20061107
  2. TYLENOL [Concomitant]
     Active Substance: ACETAMINOPHEN
     Indication: Premedication

REACTIONS (6)
  - Muscle operation [Unknown]
  - Rotator cuff syndrome [Unknown]
  - Fall [Recovering/Resolving]
  - Epicondylitis [Unknown]
  - Peripheral swelling [Unknown]
  - Balance disorder [Unknown]

NARRATIVE: CASE EVENT DATE: 20200101
